FAERS Safety Report 10974741 (Version 2)
Quarter: 2015Q2

REPORT INFORMATION
  Report Type: Spontaneous
  Country: RU (occurrence: RU)
  Receive Date: 20150401
  Receipt Date: 20150402
  Transmission Date: 20150821
  Serious: Yes (Other)
  Sender: FDA-Public Use
  Company Number: RU-ABBVIE-15P-251-1368768-00

PATIENT
  Age: 19 Year

DRUGS (3)
  1. DEPAKENE [Suspect]
     Active Substance: VALPROIC ACID
     Dosage: DAILY
     Route: 048
  2. DEPAKENE [Suspect]
     Active Substance: VALPROIC ACID
     Indication: JUVENILE MYOCLONIC EPILEPSY
     Route: 048
     Dates: start: 2009
  3. DEPAKENE [Suspect]
     Active Substance: VALPROIC ACID
     Dosage: DAILY
     Route: 048

REACTIONS (1)
  - Cardiac hypertrophy [Not Recovered/Not Resolved]
